FAERS Safety Report 14669101 (Version 1)
Quarter: 2018Q1

REPORT INFORMATION
  Report Type: Spontaneous
  Country: US (occurrence: US)
  Receive Date: 20180321
  Receipt Date: 20180321
  Transmission Date: 20180509
  Serious: Yes (Other)
  Sender: FDA-Public Use
  Company Number: None

PATIENT
  Sex: Female
  Weight: 90 kg

DRUGS (1)
  1. NEXPLANON [Suspect]
     Active Substance: ETONOGESTREL
     Indication: CONTRACEPTION
     Dates: start: 20150414, end: 20170714

REACTIONS (15)
  - Nerve injury [None]
  - Headache [None]
  - Vision blurred [None]
  - Depression [None]
  - Migraine [None]
  - Pain [None]
  - Scar [None]
  - Device dislocation [None]
  - Multiple injuries [None]
  - Mood swings [None]
  - Paraesthesia [None]
  - Device breakage [None]
  - Peripheral swelling [None]
  - Weight increased [None]
  - Menstruation irregular [None]
